FAERS Safety Report 17134791 (Version 1)
Quarter: 2019Q4

REPORT INFORMATION
  Report Type: Report from Study
  Country: DE (occurrence: DE)
  Receive Date: 20191210
  Receipt Date: 20191210
  Transmission Date: 20200122
  Serious: Yes (Hospitalization, Other)
  Sender: FDA-Public Use
  Company Number: DE-ROCHE-2381747

PATIENT
  Sex: Female

DRUGS (10)
  1. METHOTREXATE. [Suspect]
     Active Substance: METHOTREXATE
     Route: 065
     Dates: start: 201910
  2. FOLIC ACID. [Concomitant]
     Active Substance: FOLIC ACID
  3. ROACTEMRA [Suspect]
     Active Substance: TOCILIZUMAB
     Route: 058
     Dates: start: 20191022
  4. METHOTREXATE. [Suspect]
     Active Substance: METHOTREXATE
     Indication: RHEUMATOID ARTHRITIS
     Route: 065
     Dates: start: 201909
  5. ROACTEMRA [Suspect]
     Active Substance: TOCILIZUMAB
     Indication: RHEUMATOID ARTHRITIS
     Route: 058
     Dates: start: 201909
  6. RAMIPRIL. [Concomitant]
     Active Substance: RAMIPRIL
  7. DEKRISTOL [Concomitant]
     Active Substance: CHOLECALCIFEROL
  8. PREDNISOLONE. [Concomitant]
     Active Substance: PREDNISOLONE
  9. OMEPRAZOLE. [Concomitant]
     Active Substance: OMEPRAZOLE
  10. INDAPAMIDE. [Concomitant]
     Active Substance: INDAPAMIDE

REACTIONS (3)
  - Bronchitis bacterial [Recovered/Resolved]
  - Bronchitis viral [Recovered/Resolved]
  - Bronchial hyperreactivity [Recovered/Resolved]
